FAERS Safety Report 5348999-3 (Version None)
Quarter: 2007Q2

REPORT INFORMATION
  Report Type: 
  Country: None (occurrence: None)
  Receive Date: 20070516
  Receipt Date: 20061222
  Transmission Date: 20071010
  Serious: Yes (Other)
  Sender: FDA-Public Use
  Company Number: WAES 0612USA03653

PATIENT
  Sex: Female

DRUGS (2)
  1. HYDRODIURIL [Suspect]
     Dosage: PO
     Route: 048
  2. COZAAR [Concomitant]

REACTIONS (1)
  - PANCREATITIS [None]
